FAERS Safety Report 7957813-9 (Version None)
Quarter: 2011Q4

REPORT INFORMATION
  Report Type: 
  Country: None (occurrence: None)
  Receive Date: 20111205
  Receipt Date: 20111201
  Transmission Date: 20120403
  Serious: Yes (Death, Hospitalization)
  Sender: FDA-Public Use
  Company Number: BE-AMGEN-KDC416019

PATIENT
  Age: 71 Year
  Sex: Male

DRUGS (1)
  1. PANITUMUMAB [Suspect]
     Indication: COLORECTAL CANCER
     Dosage: UNK UNK, UNK
     Dates: start: 20100203, end: 20100317

REACTIONS (3)
  - PYREXIA [None]
  - MALAISE [None]
  - BACK PAIN [None]
